FAERS Safety Report 25336708 (Version 1)
Quarter: 2025Q2

REPORT INFORMATION
  Report Type: Spontaneous
  Country: US (occurrence: None)
  Receive Date: 20250520
  Receipt Date: 20250520
  Transmission Date: 20250717
  Serious: Yes (Hospitalization)
  Sender: FDA-CTU
  Company Number: None

PATIENT
  Age: 72 Year
  Sex: Female
  Weight: 85 kg

DRUGS (4)
  1. CARBOPLATIN [Suspect]
     Active Substance: CARBOPLATIN
  2. DURVALUMAB [Suspect]
     Active Substance: DURVALUMAB
  3. TAXOL [Suspect]
     Active Substance: PACLITAXEL
  4. PACLITAXEL [Suspect]
     Active Substance: PACLITAXEL

REACTIONS (5)
  - Asthenia [None]
  - Blood potassium decreased [None]
  - Liver function test increased [None]
  - Blood creatine phosphokinase increased [None]
  - Troponin increased [None]

NARRATIVE: CASE EVENT DATE: 20250504
